FAERS Safety Report 4923450-3 (Version None)
Quarter: 2006Q1

REPORT INFORMATION
  Report Type: 
  Country: None (occurrence: None)
  Receive Date: 20060227
  Receipt Date: 20060219
  Transmission Date: 20060701
  Serious: Yes (Hospitalization, Other)
  Sender: FDA-Public Use
  Company Number: PHBS2006IL02610

PATIENT
  Sex: Male

DRUGS (7)
  1. DIOVAN [Suspect]
     Indication: HYPERTENSION
     Dosage: 80 MG, QD
     Route: 048
     Dates: start: 20050201, end: 20050901
  2. RAFASSAL [Concomitant]
  3. STEROIDS NOS [Concomitant]
     Route: 048
  4. TICLIDIL [Concomitant]
  5. CARTIA XT [Concomitant]
  6. OSMO-ADALAT [Concomitant]
  7. SIMOVIL [Concomitant]

REACTIONS (3)
  - BLOOD CREATININE INCREASED [None]
  - CATHETERISATION CARDIAC [None]
  - RENAL IMPAIRMENT [None]
